FAERS Safety Report 21278646 (Version 1)
Quarter: 2022Q3

REPORT INFORMATION
  Report Type: Spontaneous
  Country: US (occurrence: US)
  Receive Date: 20220901
  Receipt Date: 20220901
  Transmission Date: 20221026
  Serious: No
  Sender: FDA-Public Use
  Company Number: US-AMGEN-USASP2022146765

PATIENT
  Age: 84 Year
  Sex: Female

DRUGS (10)
  1. REPATHA [Suspect]
     Active Substance: EVOLOCUMAB
     Indication: Blood cholesterol increased
     Dosage: 420 MILLIGRAM, QMO
     Route: 058
     Dates: start: 20220711, end: 20220812
  2. NORVASC [Concomitant]
     Active Substance: AMLODIPINE BESYLATE
     Indication: Hypertension
  3. COREG [Concomitant]
     Active Substance: CARVEDILOL
     Indication: Hypertension
  4. COREG [Concomitant]
     Active Substance: CARVEDILOL
     Indication: Atrial fibrillation
  5. DIOVAN [Concomitant]
     Active Substance: VALSARTAN
  6. PRILOSEC [Concomitant]
     Active Substance: OMEPRAZOLE MAGNESIUM
  7. TRAMADOL [Concomitant]
     Active Substance: TRAMADOL
  8. XARELTO [Concomitant]
     Active Substance: RIVAROXABAN
  9. VITAMIN D NOS [Concomitant]
     Active Substance: VITAMIN D NOS
  10. XANAX [Concomitant]
     Active Substance: ALPRAZOLAM

REACTIONS (1)
  - Memory impairment [Not Recovered/Not Resolved]

NARRATIVE: CASE EVENT DATE: 20220801
